FAERS Safety Report 5390012-6 (Version None)
Quarter: 2007Q3

REPORT INFORMATION
  Report Type: 
  Country: None (occurrence: None)
  Receive Date: 20070713
  Receipt Date: 20070710
  Transmission Date: 20080115
  Serious: Yes (Death)
  Sender: FDA-Public Use
  Company Number: 144-C5013-07070312

PATIENT

DRUGS (1)
  1. CC-5013 (LENALIDOMIDE) (CAPSULES) [Suspect]
     Indication: 5Q-SYNDROME
     Dosage: ORAL
     Route: 048

REACTIONS (1)
  - NO ADVERSE DRUG REACTION [None]
